FAERS Safety Report 24689104 (Version 1)
Quarter: 2024Q4

REPORT INFORMATION
  Report Type: Spontaneous
  Country: US (occurrence: US)
  Receive Date: 20241203
  Receipt Date: 20241203
  Transmission Date: 20250114
  Serious: No
  Sender: BEIGENE
  Company Number: US-BEIGENE-BGN-2024-018427

PATIENT

DRUGS (1)
  1. BRUKINSA [Suspect]
     Active Substance: ZANUBRUTINIB
     Indication: Product used for unknown indication
     Dosage: 320 MILLIGRAM, QD
     Route: 048
     Dates: start: 202409

REACTIONS (1)
  - Product use complaint [Unknown]

NARRATIVE: CASE EVENT DATE: 20241113
